FAERS Safety Report 16175859 (Version 1)
Quarter: 2019Q2

REPORT INFORMATION
  Report Type: Spontaneous
  Country: US (occurrence: US)
  Receive Date: 20190409
  Receipt Date: 20190409
  Transmission Date: 20190711
  Serious: Yes (Other)
  Sender: FDA-Public Use
  Company Number: US-HQ SPECIALTY-US-2019INT000108

PATIENT

DRUGS (9)
  1. DEXMEDETOMIDINE HYDROCHLORIDE. [Suspect]
     Active Substance: DEXMEDETOMIDINE HYDROCHLORIDE
     Dosage: (0.25 UG/KG
     Route: 040
  2. OXYGEN. [Concomitant]
     Active Substance: OXYGEN
     Indication: PRODUCT USED FOR UNKNOWN INDICATION
     Dosage: UNK
  3. DEXMEDETOMIDINE HYDROCHLORIDE. [Suspect]
     Active Substance: DEXMEDETOMIDINE HYDROCHLORIDE
     Indication: ANALGESIC THERAPY
     Dosage: (LOADING DOSE) (0.5 UG/KG)
     Route: 042
  4. DEXMEDETOMIDINE HYDROCHLORIDE. [Suspect]
     Active Substance: DEXMEDETOMIDINE HYDROCHLORIDE
     Dosage: (0.6 UG/KG,1 HR)
     Route: 042
  5. SEVOFLURANE. [Concomitant]
     Active Substance: SEVOFLURANE
     Indication: PRODUCT USED FOR UNKNOWN INDICATION
     Dosage: UNK
  6. NITROUS OXIDE. [Concomitant]
     Active Substance: NITROUS OXIDE
     Indication: PRODUCT USED FOR UNKNOWN INDICATION
     Dosage: UNK
     Route: 065
  7. DEXMEDETOMIDINE HYDROCHLORIDE. [Suspect]
     Active Substance: DEXMEDETOMIDINE HYDROCHLORIDE
     Dosage: (0.2 UG/KG,1 HR)
     Route: 042
  8. OXYTOCIN. [Concomitant]
     Active Substance: OXYTOCIN
     Indication: ANALGESIC THERAPY
     Dosage: UNK
     Route: 065
  9. EPHEDRINE. [Concomitant]
     Active Substance: EPHEDRINE
     Indication: BLOOD PRESSURE MEASUREMENT
     Dosage: 40 MG (GIVEN IN 10 MG DOSES)
     Route: 065

REACTIONS (3)
  - Off label use [Unknown]
  - Exposure during pregnancy [Unknown]
  - Amniotic cavity infection [Recovered/Resolved]
